FAERS Safety Report 9721789 (Version 1)
Quarter: 2013Q4

REPORT INFORMATION
  Report Type: Spontaneous
  Country: US (occurrence: US)
  Receive Date: 20131201
  Receipt Date: 20131201
  Transmission Date: 20140711
  Serious: No
  Sender: FDA-Public Use
  Company Number: US-ABBVIE-13P-163-1155045-00

PATIENT
  Sex: Male
  Weight: 111.23 kg

DRUGS (3)
  1. ANDROGEL [Suspect]
     Indication: BLOOD TESTOSTERONE DECREASED
     Route: 061
     Dates: start: 201112, end: 2012
  2. ANDROGEL [Suspect]
     Dates: start: 2012, end: 2013
  3. ANDROGEL [Suspect]
     Dates: start: 201307

REACTIONS (2)
  - Drug administered at inappropriate site [Unknown]
  - Drug ineffective [Unknown]
